FAERS Safety Report 24407919 (Version 1)
Quarter: 2024Q4

REPORT INFORMATION
  Report Type: Spontaneous
  Country: US (occurrence: US)
  Receive Date: 20241007
  Receipt Date: 20241007
  Transmission Date: 20250114
  Serious: No
  Sender: RECKITT BENCKISER
  Company Number: US-Indivior Limited-INDV-142929-2024

PATIENT
  Sex: Female

DRUGS (5)
  1. SUBLOCADE [Suspect]
     Active Substance: BUPRENORPHINE
     Indication: Drug dependence
     Dosage: 300 MILLIGRAM, QMO
     Route: 065
     Dates: start: 20240118
  2. SUBLOCADE [Suspect]
     Active Substance: BUPRENORPHINE
  3. BUPRENORPHINE [Suspect]
     Active Substance: BUPRENORPHINE
     Indication: Drug dependence
     Dosage: 8 MILLIGRAM, BID
     Route: 065
     Dates: end: 20240117
  4. BUPRENORPHINE [Suspect]
     Active Substance: BUPRENORPHINE
     Dosage: UNK (8MG/16MG)
     Route: 065
     Dates: start: 20240118, end: 20240118
  5. TOPIRAMATE [Concomitant]
     Active Substance: TOPIRAMATE
     Indication: Seizure
     Dosage: UNK
     Route: 065

REACTIONS (4)
  - Fall [Recovered/Resolved]
  - Inappropriate schedule of product administration [Recovered/Resolved]
  - Dizziness [Not Recovered/Not Resolved]
  - Fatigue [Unknown]

NARRATIVE: CASE EVENT DATE: 20240118
